FAERS Safety Report 18066424 (Version 1)
Quarter: 2020Q3

REPORT INFORMATION
  Report Type: Spontaneous
  Country: US (occurrence: US)
  Receive Date: 20200724
  Receipt Date: 20200724
  Transmission Date: 20201103
  Serious: No
  Sender: FDA-Public Use
  Company Number: US-KAMADA LIMITED-2020US000518

PATIENT

DRUGS (23)
  1. CYMBALTA [Concomitant]
     Active Substance: DULOXETINE HYDROCHLORIDE
     Dosage: UNKNOWN
     Route: 065
  2. OMEPRAZOLE. [Concomitant]
     Active Substance: OMEPRAZOLE
     Dosage: UNKNOWN
     Route: 065
  3. DIPHENHYDRAMINE. [Concomitant]
     Active Substance: DIPHENHYDRAMINE
     Dosage: UNKNOWN
     Route: 065
  4. LEVOTHYROXINE. [Concomitant]
     Active Substance: LEVOTHYROXINE
     Dosage: UNKNOWN
     Route: 065
  5. GLASSIA [Suspect]
     Active Substance: .ALPHA.1-PROTEINASE INHIBITOR HUMAN
     Indication: ALPHA-1 ANTITRYPSIN DEFICIENCY
     Dosage: 60 MG/KG, 1/WEEK (950 MG VIAL)
     Route: 042
     Dates: start: 20190507
  6. TAMIFLU [Concomitant]
     Active Substance: OSELTAMIVIR PHOSPHATE
     Dosage: UNKNOWN
     Route: 065
  7. SODIUM CHLORIDE. [Concomitant]
     Active Substance: SODIUM CHLORIDE
     Dosage: UNKNOWN
     Route: 065
  8. EPINEPHRINE. [Concomitant]
     Active Substance: EPINEPHRINE
     Dosage: UNKNOWN
     Route: 065
  9. TROKENDI XR [Concomitant]
     Active Substance: TOPIRAMATE
     Dosage: UNKNOWN
     Route: 065
  10. BELSOMRA [Concomitant]
     Active Substance: SUVOREXANT
     Dosage: UNKNOWN
     Route: 065
  11. BEVESPI AEROSPHERE [Concomitant]
     Active Substance: FORMOTEROL FUMARATE\GLYCOPYRROLATE
     Dosage: UNKNOWN
     Route: 065
  12. CYCLOBENZAPRINE. [Concomitant]
     Active Substance: CYCLOBENZAPRINE
     Dosage: UNKNOWN
     Route: 065
  13. TRELEGY ELLIPTA [Concomitant]
     Active Substance: FLUTICASONE FUROATE\UMECLIDINIUM BROMIDE\VILANTEROL TRIFENATATE
     Dosage: UNKNOWN
     Route: 065
  14. HEPARIN [Concomitant]
     Active Substance: HEPARIN SODIUM
     Dosage: UNKNOWN
     Route: 065
  15. ONDANSETRON [Concomitant]
     Active Substance: ONDANSETRON
     Dosage: UNKNOWN
     Route: 065
  16. LMX4 [Concomitant]
     Active Substance: LIDOCAINE
     Dosage: UNKNOWN
     Route: 065
  17. CLOPIDOGREL [Concomitant]
     Active Substance: CLOPIDOGREL BISULFATE
     Dosage: UNKNOWN
     Route: 065
  18. ALLOPURINOL. [Concomitant]
     Active Substance: ALLOPURINOL
     Dosage: UNKNOWN
     Route: 065
  19. ZEMAIRA [Concomitant]
     Active Substance: .ALPHA.1-PROTEINASE INHIBITOR HUMAN
     Dosage: UNKNOWN
     Route: 065
  20. TESSALON [Concomitant]
     Active Substance: BENZONATATE
     Dosage: UNKNOWN
     Route: 065
  21. GABAPENTIN. [Concomitant]
     Active Substance: GABAPENTIN
     Dosage: UNKNOWN
     Route: 065
  22. REPATHA [Concomitant]
     Active Substance: EVOLOCUMAB
     Dosage: UNKNOWN
     Route: 065
  23. DULERA [Concomitant]
     Active Substance: FORMOTEROL FUMARATE DIHYDRATE\MOMETASONE FUROATE
     Dosage: UNKNOWN
     Route: 065

REACTIONS (3)
  - Cough [Unknown]
  - Product dose omission issue [Unknown]
  - Pyrexia [Unknown]
